FAERS Safety Report 26088933 (Version 1)
Quarter: 2025Q4

REPORT INFORMATION
  Report Type: Report from Study
  Country: BR (occurrence: BR)
  Receive Date: 20251125
  Receipt Date: 20251125
  Transmission Date: 20260118
  Serious: Yes (Congenital Anomaly)
  Sender: BIOGEN
  Company Number: BR-BIOGEN-2092286

PATIENT
  Sex: Male
  Weight: 3.6 kg

DRUGS (1)
  1. TYSABRI [Suspect]
     Active Substance: NATALIZUMAB
     Indication: Multiple sclerosis
     Route: 064
     Dates: start: 2022

REACTIONS (2)
  - Laryngomalacia [Unknown]
  - Paternal exposure before pregnancy [Recovered/Resolved]

NARRATIVE: CASE EVENT DATE: 20231001
